FAERS Safety Report 17047242 (Version 1)
Quarter: 2019Q4

REPORT INFORMATION
  Report Type: Spontaneous
  Country: US (occurrence: US)
  Receive Date: 20191118
  Receipt Date: 20191118
  Transmission Date: 20200122
  Serious: Yes (Hospitalization, Other)
  Sender: FDA-Public Use
  Company Number: None

PATIENT
  Age: 43 Year
  Sex: Male
  Weight: 83.9 kg

DRUGS (1)
  1. NIVOLUMAB [Suspect]
     Active Substance: NIVOLUMAB
     Indication: MALIGNANT MELANOMA
     Route: 042
     Dates: start: 20191101, end: 20191101

REACTIONS (5)
  - Blood sodium decreased [None]
  - Type 1 diabetes mellitus [None]
  - Blood bicarbonate decreased [None]
  - Diabetic ketoacidosis [None]
  - Anion gap increased [None]

NARRATIVE: CASE EVENT DATE: 20191115
